FAERS Safety Report 11420227 (Version 1)
Quarter: 2015Q3

REPORT INFORMATION
  Report Type: Spontaneous
  Country: US (occurrence: None)
  Receive Date: 20150825
  Receipt Date: 20150825
  Transmission Date: 20151125
  Serious: Yes (Death, Life-Threatening, Hospitalization)
  Sender: FDA-Public Use
  Company Number: None

PATIENT
  Age: 46 Year
  Sex: Female
  Weight: 52.3 kg

DRUGS (3)
  1. BLEOMYCIN [Suspect]
     Active Substance: BLEOMYCIN SULFATE
     Indication: KAPOSI^S SARCOMA
     Dosage: 23.4 UNITS?EVERY 3 WEEKS?INTRAVENOU
     Route: 042
     Dates: start: 20150612, end: 20150612
  2. ATRIPLA [Suspect]
     Active Substance: EFAVIRENZ\EMTRICITABINE\TENOFOVIR DISOPROXIL FUMARATE
     Indication: HIV INFECTION
     Dosage: 600/200/300 MG?EVERY DAY?ORAL
     Route: 048
     Dates: start: 20141208, end: 20150708
  3. VINCRISTINE [Suspect]
     Active Substance: VINCRISTINE
     Indication: KAPOSI^S SARCOMA
     Dosage: 2 MG ?EVERY 3 WEEKS ?INTRAVENOUS
     Route: 042
     Dates: start: 20150612, end: 20150612

REACTIONS (8)
  - Malignant neoplasm progression [None]
  - Blood creatinine increased [None]
  - Chronic hepatitis B [None]
  - Kaposi^s sarcoma [None]
  - Hepatic cirrhosis [None]
  - General physical health deterioration [None]
  - Nephritis [None]
  - Toxicity to various agents [None]

NARRATIVE: CASE EVENT DATE: 20150708
